FAERS Safety Report 8223813-7 (Version None)
Quarter: 2012Q1

REPORT INFORMATION
  Report Type: 
  Country: None (occurrence: None)
  Receive Date: 20120321
  Receipt Date: 20120321
  Transmission Date: 20120608
  Serious: Yes (Other)
  Sender: FDA-Public Use
  Company Number: None

PATIENT
  Age: 18 Year
  Sex: Female
  Weight: 56.245 kg

DRUGS (1)
  1. VYVANSE [Suspect]
     Dosage: 30MG
     Route: 048

REACTIONS (2)
  - MENTAL DISORDER [None]
  - MANIA [None]
